FAERS Safety Report 5368407-6 (Version None)
Quarter: 2007Q2

REPORT INFORMATION
  Report Type: 
  Country: None (occurrence: None)
  Receive Date: 20070621
  Receipt Date: 20070611
  Transmission Date: 20071010
  Serious: Yes (Hospitalization)
  Sender: FDA-Public Use
  Company Number: GXKR2006GB04895

PATIENT
  Age: 86 Year
  Sex: Female

DRUGS (3)
  1. ASPIRIN [Suspect]
     Dosage: 75 MG, QD, ORAL
     Route: 048
     Dates: end: 20060314
  2. LEVOTHYROXINE SODIUM [Concomitant]
  3. VALSARTAN [Concomitant]

REACTIONS (1)
  - HAEMOGLOBIN DECREASED [None]
